FAERS Safety Report 6358962-1 (Version None)
Quarter: 2009Q3

REPORT INFORMATION
  Report Type: 
  Country: None (occurrence: None)
  Receive Date: 20090914
  Receipt Date: 20090831
  Transmission Date: 20100115
  Serious: Yes (Other)
  Sender: FDA-Public Use
  Company Number: AT-1170815

PATIENT
  Age: 50 Year
  Sex: Female

DRUGS (4)
  1. KANAMYCIN [Suspect]
     Dosage: QD OPHTHALMIC
     Route: 047
     Dates: start: 20070401
  2. PREDNISOLONE ACETATE [Suspect]
     Dosage: QD OPHTHALMIC
     Route: 047
     Dates: start: 20070401
  3. CIPROFLAXACIN [Suspect]
     Dosage: Q1H OPHTHALMIC
     Route: 047
     Dates: start: 20070401
  4. DICLOFENAC SODIUM [Suspect]
     Dosage: 7XD X1WK OPHTHALMIC
     Route: 047
     Dates: start: 20070401

REACTIONS (6)
  - ARTHRALGIA [None]
  - BLOOD TRIGLYCERIDES INCREASED [None]
  - DRUG RESISTANCE [None]
  - ENDOPHTHALMITIS [None]
  - FUSARIUM INFECTION [None]
  - HEPATIC ENZYME INCREASED [None]
